FAERS Safety Report 7621020-X (Version None)
Quarter: 2011Q3

REPORT INFORMATION
  Report Type: 
  Country: None (occurrence: None)
  Receive Date: 20110719
  Receipt Date: 20101112
  Transmission Date: 20111222
  Serious: No
  Sender: FDA-Public Use
  Company Number: US-KINGPHARMUSA00001-K201001388

PATIENT
  Age: 76 Year
  Sex: Female
  Weight: 58.957 kg

DRUGS (2)
  1. NORVASC [Concomitant]
     Indication: HYPERTENSION
     Dosage: UNK
  2. LEVOXYL [Suspect]
     Indication: HYPOTHYROIDISM
     Dosage: 75 MCG, QD
     Route: 048
     Dates: start: 20100201, end: 20101112

REACTIONS (2)
  - BLOOD PRESSURE DECREASED [None]
  - ABDOMINAL DISCOMFORT [None]
